FAERS Safety Report 16543958 (Version 1)
Quarter: 2019Q3

REPORT INFORMATION
  Report Type: Spontaneous
  Country: CH (occurrence: CH)
  Receive Date: 20190709
  Receipt Date: 20190709
  Transmission Date: 20191004
  Serious: Yes (Other)
  Sender: FDA-Public Use
  Company Number: CH-PFIZER INC-2019284882

PATIENT
  Age: 71 Year
  Sex: Male

DRUGS (15)
  1. MERONEM [Suspect]
     Active Substance: MEROPENEM
     Dosage: UNK
     Dates: start: 20190610, end: 20190612
  2. FLORINEF ACETATE [Concomitant]
     Active Substance: FLUDROCORTISONE ACETATE
     Dosage: UNK
     Dates: start: 20190616
  3. VANCOMYCIN [VANCOMYCIN HYDROCHLORIDE] [Suspect]
     Active Substance: VANCOMYCIN HYDROCHLORIDE
     Dosage: 1 G, 2X/DAY
     Dates: start: 20190610, end: 20190612
  4. SOLU-CORTEF [Concomitant]
     Active Substance: HYDROCORTISONE SODIUM SUCCINATE
     Dosage: UNK
     Dates: start: 20190610
  5. NOVORAPID [Concomitant]
     Active Substance: INSULIN ASPART
     Dosage: UNK, AS NEEDED
     Dates: start: 20190611
  6. PROPOFOL. [Concomitant]
     Active Substance: PROPOFOL
     Dosage: AS NECESSARY
  7. FENTANYL. [Concomitant]
     Active Substance: FENTANYL
     Dosage: UNK, AS NEEDED
     Dates: end: 20190618
  8. NORADRENALINE [NOREPINEPHRINE] [Concomitant]
     Active Substance: NOREPINEPHRINE
     Dosage: UNK, AS NEEDED
  9. VANCOMYCIN [VANCOMYCIN HYDROCHLORIDE] [Suspect]
     Active Substance: VANCOMYCIN HYDROCHLORIDE
     Dosage: 1 G, 2X/DAY
     Dates: start: 20190605, end: 20190608
  10. PROPOFOL. [Concomitant]
     Active Substance: PROPOFOL
     Dosage: IN TOTAL
     Dates: start: 20190611, end: 20190611
  11. ECALTA [Suspect]
     Active Substance: ANIDULAFUNGIN
     Dosage: UNK
     Dates: start: 20190610, end: 20190612
  12. MERONEM [Suspect]
     Active Substance: MEROPENEM
     Dosage: UNK
     Dates: start: 20190605, end: 20190608
  13. ARGATRA [Suspect]
     Active Substance: ARGATROBAN
     Dosage: 0.37- 1.5 MG/L
     Route: 042
     Dates: start: 20190609, end: 20190618
  14. NEXIUM [Concomitant]
     Active Substance: ESOMEPRAZOLE MAGNESIUM
     Dosage: UNK
     Dates: start: 20190612, end: 20190612
  15. NEXIUM [Concomitant]
     Active Substance: ESOMEPRAZOLE MAGNESIUM
     Dosage: UNK
     Dates: start: 20190616

REACTIONS (1)
  - Hepatocellular injury [Recovering/Resolving]

NARRATIVE: CASE EVENT DATE: 20190616
